FAERS Safety Report 20798521 (Version 1)
Quarter: 2022Q2

REPORT INFORMATION
  Report Type: Spontaneous
  Country: US (occurrence: US)
  Receive Date: 20220507
  Receipt Date: 20220507
  Transmission Date: 20220721
  Serious: No
  Sender: FDA-Public Use
  Company Number: US-BRISTOL-MYERS SQUIBB COMPANY-2022-034033

PATIENT
  Age: 68 Year
  Sex: Male

DRUGS (1)
  1. REVLIMID [Suspect]
     Active Substance: LENALIDOMIDE
     Indication: Plasma cell myeloma
     Dosage: DOSE: 5 MILLIGRAM, FREQ: BY MOUTH DAILY FOR 14 DAYS, 7 DAYS OFF
     Route: 048

REACTIONS (2)
  - Immune system disorder [Unknown]
  - Nasopharyngitis [Unknown]
